FAERS Safety Report 16256993 (Version 1)
Quarter: 2019Q2

REPORT INFORMATION
  Report Type: Spontaneous
  Country: US (occurrence: US)
  Receive Date: 20190430
  Receipt Date: 20190430
  Transmission Date: 20190711
  Serious: Yes (Hospitalization)
  Sender: FDA-Public Use
  Company Number: US-PFIZER INC-2019179326

PATIENT
  Age: 60 Year
  Sex: Female
  Weight: 72.57 kg

DRUGS (4)
  1. KEPPRA [Concomitant]
     Active Substance: LEVETIRACETAM
     Indication: SEIZURE
     Dosage: 200 MG, 2X/DAY
     Route: 048
  2. LYRICA [Suspect]
     Active Substance: PREGABALIN
     Indication: SEIZURE
     Dosage: 150 MG, DAILY (ONE CAPSULE MORNING AND 2 CAPSULES AT NIGHT)
     Dates: start: 2011
  3. LYRICA [Suspect]
     Active Substance: PREGABALIN
     Dosage: 300 MG, DAILY
  4. LYRICA [Suspect]
     Active Substance: PREGABALIN
     Dosage: 200 MG, 2X/DAY

REACTIONS (4)
  - Epilepsy [Unknown]
  - Weight increased [Unknown]
  - Fatigue [Unknown]
  - Feeling abnormal [Unknown]
